FAERS Safety Report 9168989 (Version 1)
Quarter: 2013Q1

REPORT INFORMATION
  Report Type: Spontaneous
  Country: TR (occurrence: TR)
  Receive Date: 20130318
  Receipt Date: 20130318
  Transmission Date: 20140127
  Serious: Yes (Hospitalization)
  Sender: FDA-Public Use
  Company Number: TR-BAYER-2013-030263

PATIENT
  Age: 26 Year
  Sex: Female

DRUGS (4)
  1. NIFEDIPINE [Suspect]
     Indication: PREMATURE LABOUR
     Dosage: DAILY DOSE 160 MG, AT 31 WEEKS OF GESTATION
  2. BETAMETHASONE [Suspect]
     Indication: PREMATURE LABOUR
     Dosage: 12 MG/24HR, BID AT 31 WEEKS OF GESTATION
     Route: 042
  3. CISPLATIN [Suspect]
     Indication: ADENOCARCINOMA OF THE CERVIX
     Dosage: 110 MG, 3 TIMES OVER 3 WEEKS (19TH WEEK OF PREGNANCY)
  4. CISPLATIN [Suspect]
     Indication: ADENOCARCINOMA OF THE CERVIX
     Dosage: DOSE GIVEN AT 28 WEEKS OF GESTATION

REACTIONS (3)
  - Premature delivery [Recovered/Resolved]
  - Exposure during pregnancy [None]
  - Off label use [None]
